FAERS Safety Report 5263464-X (Version None)
Quarter: 2007Q1

REPORT INFORMATION
  Report Type: 
  Country: None (occurrence: None)
  Receive Date: 20070313
  Receipt Date: 20070302
  Transmission Date: 20070707
  Serious: Yes (Death)
  Sender: FDA-Public Use
  Company Number: US-JNJFOC-20070300800

PATIENT
  Sex: Female
  Weight: 72.58 kg

DRUGS (18)
  1. RISPERDAL [Suspect]
     Indication: DEMENTIA
     Route: 048
  2. RISPERDAL [Suspect]
     Indication: AGITATION
     Route: 048
  3. PLAVIX [Concomitant]
     Indication: ANTICOAGULANT THERAPY
  4. LOPERAMIDE HCL [Concomitant]
  5. RAZADYNE [Concomitant]
     Indication: DEMENTIA ALZHEIMER'S TYPE
  6. LORATADINE [Concomitant]
  7. VITAMIN B-12 [Concomitant]
  8. NAMENDA [Concomitant]
     Indication: DEMENTIA ALZHEIMER'S TYPE
  9. POTASSIUM CHLORIDE [Concomitant]
  10. FUROSEMIDE [Concomitant]
     Indication: FLUID RETENTION
  11. LIPITOR [Concomitant]
     Indication: BLOOD CHOLESTEROL INCREASED
  12. GLYCOLAX [Concomitant]
  13. MILK OF MAGNESIA [Concomitant]
     Indication: CONSTIPATION
  14. LEVOTHYROXINE SODIUM [Concomitant]
     Indication: THYROID DISORDER
  15. VITAMINS [Concomitant]
  16. LORAZEPAM [Concomitant]
     Indication: AGITATION
  17. CLOPIDOGREL [Concomitant]
  18. VESICARE [Concomitant]
     Indication: DYSURIA

REACTIONS (6)
  - CONFUSIONAL STATE [None]
  - DYSPHAGIA [None]
  - HEART RATE INCREASED [None]
  - MYOCARDIAL INFARCTION [None]
  - RESPIRATORY RATE INCREASED [None]
  - SOMNOLENCE [None]
